FAERS Safety Report 9244412 (Version 1)
Quarter: 2013Q2

REPORT INFORMATION
  Report Type: Spontaneous
  Country: DK (occurrence: DK)
  Receive Date: 20130422
  Receipt Date: 20130422
  Transmission Date: 20140414
  Serious: Yes (Life-Threatening)
  Sender: FDA-Public Use
  Company Number: DK-JNJFOC-20130409099

PATIENT
  Age: 33 Year
  Sex: Male
  Weight: 70 kg

DRUGS (1)
  1. REMICADE [Suspect]
     Indication: ANKYLOSING SPONDYLITIS
     Dosage: 0, 2, 6 PLUS 6 EVERY 6, WEEKS
     Route: 042
     Dates: start: 20121015, end: 20130404

REACTIONS (2)
  - Dyspnoea [Recovered/Resolved]
  - Respiratory disorder [Unknown]
